FAERS Safety Report 5950731-7 (Version None)
Quarter: 2008Q4

REPORT INFORMATION
  Report Type: 
  Country: None (occurrence: None)
  Receive Date: 20081112
  Receipt Date: 20081106
  Transmission Date: 20090506
  Serious: Yes (Hospitalization)
  Sender: FDA-Public Use
  Company Number: FR-B.I. PHARMACEUTICALS,INC./RIDGEFIELD-2008-FF-00813FF

PATIENT
  Sex: Male
  Weight: 62 kg

DRUGS (8)
  1. MECIR LP 0.4 [Suspect]
     Dosage: .4MG
     Route: 048
     Dates: start: 20080601, end: 20080904
  2. CORTANCYL [Concomitant]
     Dosage: 20MG
  3. DIFFU-K [Concomitant]
  4. ATARAX [Concomitant]
  5. INSULINE LANTUS [Concomitant]
     Indication: DIABETES MELLITUS
  6. GLUCOPHAGE [Concomitant]
     Indication: DIABETES MELLITUS
  7. DIAMICRON [Concomitant]
     Indication: DIABETES MELLITUS
  8. PLAQUENIL [Concomitant]
     Indication: SYSTEMIC LUPUS ERYTHEMATOSUS
     Dates: start: 20080620, end: 20080701

REACTIONS (1)
  - FACIAL WASTING [None]
